FAERS Safety Report 5841637-2 (Version None)
Quarter: 2008Q3

REPORT INFORMATION
  Report Type: 
  Country: None (occurrence: None)
  Receive Date: 20080731
  Receipt Date: 20080625
  Transmission Date: 20090109
  Serious: No
  Sender: FDA-Public Use
  Company Number: US200806005917

PATIENT
  Age: 65 Year
  Sex: Female
  Weight: 53.1 kg

DRUGS (11)
  1. BYETTA [Suspect]
     Indication: TYPE 2 DIABETES MELLITUS
     Dosage: 5 UG, 2/D, SUBCUTANEOUS
     Route: 058
     Dates: start: 20080604
  2. DRUG USED IN DIABETES [Concomitant]
  3. SINGULAIR [Concomitant]
  4. SPIRIVA [Concomitant]
  5. ADVAIR DISKUS 100/50 [Concomitant]
  6. VYTORIN [Concomitant]
  7. HYDROCHLOROTHIAZIDE [Concomitant]
  8. LEXAPRO [Concomitant]
  9. ALBUTEROL [Concomitant]
  10. ASPIRIN /USA/ (ACETYLSALICYLIC ACID) [Concomitant]
  11. CARDIZEM [Concomitant]

REACTIONS (4)
  - ASTHENIA [None]
  - DIZZINESS [None]
  - FATIGUE [None]
  - WEIGHT DECREASED [None]
